FAERS Safety Report 9625336 (Version 1)
Quarter: 2013Q4

REPORT INFORMATION
  Report Type: Spontaneous
  Country: US (occurrence: US)
  Receive Date: 20131016
  Receipt Date: 20131016
  Transmission Date: 20140711
  Serious: No
  Sender: FDA-Public Use
  Company Number: US-PFIZER INC-2013296254

PATIENT
  Age: 54 Year
  Sex: Female
  Weight: 62.6 kg

DRUGS (3)
  1. CHANTIX [Suspect]
     Indication: SMOKING CESSATION THERAPY
     Dosage: UNK
     Dates: start: 20130929
  2. GLUCOTROL XL [Concomitant]
     Indication: BLOOD GLUCOSE INCREASED
     Dosage: 10 MG, 2X/DAY
  3. METFORMIN [Concomitant]
     Indication: BLOOD GLUCOSE INCREASED
     Dosage: 1000 MG, 2X/DAY

REACTIONS (2)
  - Nausea [Unknown]
  - Malaise [Unknown]
